FAERS Safety Report 16766110 (Version 3)
Quarter: 2019Q4

REPORT INFORMATION
  Report Type: Spontaneous
  Country: NL (occurrence: NL)
  Receive Date: 20190903
  Receipt Date: 20191031
  Transmission Date: 20200122
  Serious: Yes (Other)
  Sender: FDA-Public Use
  Company Number: NL-SA-2019SA245372

PATIENT
  Age: 44 Year
  Sex: Male

DRUGS (4)
  1. FLUOROMETHOLONE. [Concomitant]
     Active Substance: FLUOROMETHOLONE
     Indication: KERATITIS
     Dosage: 1 MG/ML
     Route: 031
     Dates: start: 20171228
  2. SERETIDE [Concomitant]
     Active Substance: FLUTICASONE PROPIONATE\SALMETEROL XINAFOATE
     Indication: ASTHMA
     Dosage: 25/125 UG/DOS
  3. DUPILUMAB [Suspect]
     Active Substance: DUPILUMAB
     Indication: DERMATITIS ATOPIC
     Dosage: 300 MG
     Route: 058
     Dates: start: 20171206
  4. VENTOLINE [SALBUTAMOL] [Concomitant]
     Active Substance: ALBUTEROL SULFATE
     Indication: ASTHMA
     Dosage: 200 UG (200 MCG/DOS)

REACTIONS (2)
  - Symblepharon [Not Recovered/Not Resolved]
  - Conjunctival scar [Unknown]

NARRATIVE: CASE EVENT DATE: 20171229
